FAERS Safety Report 9661254 (Version 1)
Quarter: 2013Q4

REPORT INFORMATION
  Report Type: Spontaneous
  Country: JP (occurrence: JP)
  Receive Date: 20131031
  Receipt Date: 20131031
  Transmission Date: 20140711
  Serious: Yes (Other)
  Sender: FDA-Public Use
  Company Number: JP-TAKEDA-2013TJP002280

PATIENT
  Age: 62 Year
  Sex: Female

DRUGS (3)
  1. TAKEPRON OD TABLETS 15 [Suspect]
     Indication: PRODUCT USED FOR UNKNOWN INDICATION
     Dosage: 15 MG, QD
     Route: 048
     Dates: start: 2008, end: 20131027
  2. OLMETEC [Suspect]
     Route: 048
  3. CONIEL [Concomitant]
     Route: 048

REACTIONS (1)
  - Thrombocytopenia [Unknown]
